FAERS Safety Report 25006329 (Version 2)
Quarter: 2025Q3

REPORT INFORMATION
  Report Type: Report from Study
  Country: US (occurrence: US)
  Receive Date: 20250224
  Receipt Date: 20250803
  Transmission Date: 20251021
  Serious: Yes (Other)
  Sender: ALEXION PHARMACEUTICALS
  Company Number: US-AstraZeneca-CH-00810446A

PATIENT
  Sex: Female

DRUGS (1)
  1. OLAPARIB [Suspect]
     Active Substance: OLAPARIB
     Indication: Ovarian cancer
     Dosage: 150 MILLIGRAM, QID
     Dates: start: 202502

REACTIONS (6)
  - Neuropathy peripheral [Unknown]
  - Erythema [Unknown]
  - Joint stiffness [Unknown]
  - Eye swelling [Unknown]
  - Rash macular [Unknown]
  - Hypersensitivity [Unknown]
